FAERS Safety Report 16834283 (Version 1)
Quarter: 2019Q3

REPORT INFORMATION
  Report Type: Spontaneous
  Country: US (occurrence: US)
  Receive Date: 20190920
  Receipt Date: 20190920
  Transmission Date: 20191005
  Serious: Yes (Hospitalization)
  Sender: FDA-Public Use
  Company Number: US-PFIZER INC-2019404909

PATIENT
  Age: 51 Year
  Sex: Female

DRUGS (2)
  1. GILENYA [Suspect]
     Active Substance: FINGOLIMOD HYDROCHLORIDE
     Dosage: UNK
  2. SOLU-MEDROL [Suspect]
     Active Substance: METHYLPREDNISOLONE SODIUM SUCCINATE
     Dosage: UNK

REACTIONS (7)
  - Purulent discharge [Unknown]
  - Blood pressure increased [Unknown]
  - Malaise [Unknown]
  - Impaired healing [Unknown]
  - Respiratory tract infection viral [Unknown]
  - Oropharyngeal spasm [Recovering/Resolving]
  - Dyspnoea [Unknown]
